FAERS Safety Report 7562067-1 (Version None)
Quarter: 2011Q2

REPORT INFORMATION
  Report Type: 
  Country: None (occurrence: None)
  Receive Date: 20110622
  Receipt Date: 20110421
  Transmission Date: 20111010
  Serious: Yes (Other)
  Sender: FDA-Public Use
  Company Number: PHHY2011JP19626

PATIENT
  Sex: Male

DRUGS (8)
  1. AFINITOR [Suspect]
     Indication: RENAL CELL CARCINOMA
     Dosage: 10 MG, QD
     Route: 048
     Dates: start: 20100630, end: 20100820
  2. SUNITINIB MALATE [Concomitant]
     Dosage: 37.5 MG, UNK
     Route: 048
     Dates: end: 20100601
  3. URSO 250 [Concomitant]
     Indication: RENAL CELL CARCINOMA
     Dosage: 600 MG, UNK
     Route: 048
     Dates: start: 20100616, end: 20100820
  4. ADONA [Concomitant]
     Indication: RENAL CELL CARCINOMA
     Dosage: 90 MG, UNK
     Route: 048
     Dates: start: 20100413, end: 20100820
  5. FERO-GRADUMET [Concomitant]
     Indication: RENAL CELL CARCINOMA
     Dosage: 105 MG, UNK
     Route: 048
     Dates: start: 20100421, end: 20100820
  6. SUNITINIB MALATE [Concomitant]
     Indication: RENAL CELL CARCINOMA
     Dosage: 50 MG, UNK
     Route: 048
     Dates: start: 20100210
  7. AZUNOL [Concomitant]
     Indication: PROPHYLAXIS
     Dosage: 5 ML, UNK
     Route: 048
     Dates: start: 20100630, end: 20100820
  8. TRANSAMIN [Concomitant]
     Indication: RENAL CELL CARCINOMA
     Dosage: 750 MG, UNK
     Route: 048
     Dates: start: 20100413, end: 20100820

REACTIONS (1)
  - BLOOD LACTATE DEHYDROGENASE INCREASED [None]
